FAERS Safety Report 19030825 (Version 1)
Quarter: 2021Q1

REPORT INFORMATION
  Report Type: Spontaneous
  Country: US (occurrence: US)
  Receive Date: 20210319
  Receipt Date: 20210319
  Transmission Date: 20210420
  Serious: Yes (Hospitalization)
  Sender: FDA-Public Use
  Company Number: None

PATIENT
  Age: 82 Year
  Sex: Male

DRUGS (12)
  1. ISOSORB MONO [Concomitant]
     Active Substance: ISOSORBIDE MONONITRATE
  2. HUMIRA [Suspect]
     Active Substance: ADALIMUMAB
     Indication: RHEUMATOID ARTHRITIS
     Dosage: ?          OTHER FREQUENCY:EVERY 2 WEEKS;?
     Route: 058
     Dates: start: 20180228
  3. CHLORD/CLIDI [Concomitant]
  4. FUROSEMIDE. [Concomitant]
     Active Substance: FUROSEMIDE
  5. POT CL MICRO [Concomitant]
  6. DEXAMETHASON [Concomitant]
     Active Substance: DEXAMETHASONE
  7. LISINOPRIL. [Concomitant]
     Active Substance: LISINOPRIL
  8. ENTRESTO [Concomitant]
     Active Substance: SACUBITRIL\VALSARTAN
  9. METRONIDAZOL [Concomitant]
     Active Substance: METRONIDAZOLE
  10. AMIODARONE [Concomitant]
     Active Substance: AMIODARONE
  11. CLOPIDOGREL [Concomitant]
     Active Substance: CLOPIDOGREL BISULFATE
  12. ASPIRIN CHW [Concomitant]

REACTIONS (1)
  - Cardiac disorder [None]
